FAERS Safety Report 10475873 (Version 2)
Quarter: 2015Q3

REPORT INFORMATION
  Report Type: Spontaneous
  Country: US (occurrence: US)
  Receive Date: 20140925
  Receipt Date: 20150728
  Transmission Date: 20151125
  Serious: No
  Sender: FDA-Public Use
  Company Number: US-GLAXOSMITHKLINE-A1085000A

PATIENT
  Age: 57 Year
  Sex: Female

DRUGS (6)
  1. ANTIHISTAMINE [Concomitant]
     Active Substance: UNSPECIFIED INGREDIENT
     Indication: HYPERSENSITIVITY
  2. COREG [Suspect]
     Active Substance: CARVEDILOL
     Dates: start: 2009
  3. ANTACID [Concomitant]
     Active Substance: ALUMINUM HYDROXIDE\CALCIUM CARBONATE\DIMETHICONE\MAGNESIUM HYDROXIDE
  4. CARVEDILOL TABLET [Suspect]
     Active Substance: CARVEDILOL
     Indication: CARDIAC DISORDER
     Route: 048
     Dates: start: 2013
  5. TENORMIN [Suspect]
     Active Substance: ATENOLOL
  6. ANTI-DIABETIC MEDICATION [Concomitant]
     Active Substance: UNSPECIFIED INGREDIENT

REACTIONS (3)
  - Fatigue [Unknown]
  - Therapeutic response decreased [Unknown]
  - Ejection fraction decreased [Recovering/Resolving]
